FAERS Safety Report 7794901-4 (Version None)
Quarter: 2011Q4

REPORT INFORMATION
  Report Type: 
  Country: None (occurrence: None)
  Receive Date: 20111004
  Receipt Date: 20110923
  Transmission Date: 20120403
  Serious: Yes (Other)
  Sender: FDA-Public Use
  Company Number: PHHY2011FR85044

PATIENT
  Sex: Female

DRUGS (4)
  1. PLAVIX [Concomitant]
     Dosage: 75 MG, DAILY
  2. ESOMEPRAZOLE SODIUM [Concomitant]
     Dosage: UNK UKN, UNK
  3. TASIGNA [Suspect]
     Indication: CHRONIC MYELOID LEUKAEMIA
     Dosage: 300 MG, BID
     Route: 048
     Dates: start: 20110126, end: 20110701
  4. PAROXETINE HCL [Concomitant]

REACTIONS (1)
  - HEADACHE [None]
